FAERS Safety Report 9118154 (Version 1)
Quarter: 2013Q1

REPORT INFORMATION
  Report Type: Report from Study
  Country: US (occurrence: US)
  Receive Date: 20130129
  Receipt Date: 20130129
  Transmission Date: 20140127
  Serious: No
  Sender: FDA-Public Use
  Company Number: US-ABBOTT-12P-163-0941660-00

PATIENT
  Age: 31 Year
  Sex: Female
  Weight: 63.56 kg

DRUGS (5)
  1. HUMIRA 40 MG/0.8 ML PEN [Suspect]
     Indication: PSORIATIC ARTHROPATHY
     Dates: start: 201204
  2. ABILIFY [Concomitant]
     Indication: PRODUCT USED FOR UNKNOWN INDICATION
  3. COGENTIN [Concomitant]
     Indication: BIPOLAR DISORDER
  4. DIVALPROEX SODIUM [Concomitant]
     Indication: BIPOLAR DISORDER
  5. METHOTREXATE [Concomitant]
     Indication: PSORIATIC ARTHROPATHY

REACTIONS (1)
  - Chest pain [Recovered/Resolved]
